FAERS Safety Report 26019474 (Version 1)
Quarter: 2025Q4

REPORT INFORMATION
  Report Type: Spontaneous
  Country: US (occurrence: None)
  Receive Date: 20251107
  Receipt Date: 20251107
  Transmission Date: 20260117
  Serious: Yes (Disabling, Other)
  Sender: FDA-CTU
  Company Number: None

PATIENT
  Age: 67 Year
  Sex: Female
  Weight: 60.75 kg

DRUGS (5)
  1. RECLAST [Suspect]
     Active Substance: ZOLEDRONIC ACID
     Indication: Osteoporosis
     Dosage: OTHER STRENGTH : UNKNOWN;?OTHER QUANTITY : 1 INFUSION;?OTHER FREQUENCY : ANNUAL;?OTHER ROUTE : INFUSION;?
     Route: 050
  2. VALACYCLOVIR 500 MG DAILY [Concomitant]
  3. AlgaeCal Plus with Strontium [Concomitant]
  4. Smarty Pants Women^s daily multivitamin [Concomitant]
  5. CALCIUM\CHOLECALCIFEROL [Concomitant]
     Active Substance: CALCIUM\CHOLECALCIFEROL

REACTIONS (7)
  - Arthralgia [None]
  - Groin pain [None]
  - Tendon disorder [None]
  - Arthralgia [None]
  - Cartilage injury [None]
  - Arthritis [None]
  - Gait disturbance [None]

NARRATIVE: CASE EVENT DATE: 20241001
